FAERS Safety Report 7366895-7 (Version None)
Quarter: 2011Q1

REPORT INFORMATION
  Report Type: 
  Country: None (occurrence: None)
  Receive Date: 20110322
  Receipt Date: 20110316
  Transmission Date: 20110831
  Serious: Yes (Life-Threatening, Hospitalization)
  Sender: FDA-Public Use
  Company Number: B0656620A

PATIENT
  Sex: Male
  Weight: 80.3 kg

DRUGS (6)
  1. MARAVIROC [Suspect]
     Indication: HIV INFECTION
     Dosage: 150MG TWICE PER DAY
     Route: 048
     Dates: start: 20070905
  2. TRAZODONE [Concomitant]
     Route: 048
     Dates: start: 20071011
  3. ATAZANAVIR [Concomitant]
     Route: 048
     Dates: start: 20050811
  4. RITONAVIR [Concomitant]
     Route: 048
     Dates: start: 20050811
  5. VITALUX [Concomitant]
     Route: 048
     Dates: start: 20081106
  6. ABACAVIR [Suspect]
     Indication: HIV INFECTION
     Dosage: 600MG PER DAY
     Route: 048
     Dates: start: 20050811, end: 20100505

REACTIONS (1)
  - MYOCARDIAL INFARCTION [None]
